FAERS Safety Report 22065112 (Version 1)
Quarter: 2023Q1

REPORT INFORMATION
  Report Type: Spontaneous
  Country: JP (occurrence: JP)
  Receive Date: 20230306
  Receipt Date: 20230306
  Transmission Date: 20230418
  Serious: Yes (Other)
  Sender: FDA-Public Use
  Company Number: JP-MSD-M2023-08429

PATIENT
  Age: 76 Year
  Sex: Male

DRUGS (3)
  1. KEYTRUDA [Suspect]
     Active Substance: PEMBROLIZUMAB
     Indication: Oesophageal carcinoma
     Dosage: 200 MILLIGRAM, Q3W
     Route: 041
  2. CISPLATIN [Suspect]
     Active Substance: CISPLATIN
     Indication: Oesophageal carcinoma
     Dosage: 80 MILLIGRAM/SQ. METER, Q3W
     Route: 041
  3. FLUOROURACIL [Suspect]
     Active Substance: FLUOROURACIL
     Indication: Oesophageal carcinoma
     Dosage: 4000 MILLIGRAM/SQ. METER, Q3W
     Route: 065

REACTIONS (1)
  - Neutropenia [Recovering/Resolving]
